APPROVED DRUG PRODUCT: IMIQUIMOD
Active Ingredient: IMIQUIMOD
Strength: 3.75%
Dosage Form/Route: CREAM;TOPICAL
Application: A205971 | Product #001 | TE Code: AB
Applicant: TARO PHARMACEUTICAL INDUSTRIES LTD
Approved: Jan 26, 2021 | RLD: No | RS: No | Type: RX